FAERS Safety Report 10909708 (Version 1)
Quarter: 2015Q1

REPORT INFORMATION
  Report Type: Spontaneous
  Country: US (occurrence: US)
  Receive Date: 20150312
  Receipt Date: 20150312
  Transmission Date: 20150721
  Serious: No
  Sender: FDA-Public Use
  Company Number: US-SA-2014SA070651

PATIENT
  Age: 75 Year
  Sex: Female

DRUGS (1)
  1. NASACORT ALLERGY 24HR [Suspect]
     Active Substance: TRIAMCINOLONE ACETONIDE
     Indication: MULTIPLE ALLERGIES
     Dosage: TAKEN FROM- 2 AND HALF WEEKS AGO, TAKEN TO-A FEW DAYS AGO
     Route: 045

REACTIONS (1)
  - Ear congestion [Recovered/Resolved]
